FAERS Safety Report 23884346 (Version 1)
Quarter: 2024Q2

REPORT INFORMATION
  Report Type: Spontaneous
  Country: US (occurrence: None)
  Receive Date: 20240522
  Receipt Date: 20240522
  Transmission Date: 20240716
  Serious: No
  Sender: FDA-Public Use
  Company Number: None

PATIENT
  Sex: Male
  Weight: 101.7 kg

DRUGS (2)
  1. DARATUMUMAB [Suspect]
     Active Substance: DARATUMUMAB
  2. LENALIDOMIDE [Suspect]
     Active Substance: LENALIDOMIDE

REACTIONS (7)
  - Dyspnoea [None]
  - Weight increased [None]
  - Oedema peripheral [None]
  - Atelectasis [None]
  - Pleural effusion [None]
  - Haemoglobin decreased [None]
  - Blood creatinine increased [None]

NARRATIVE: CASE EVENT DATE: 20240214
